FAERS Safety Report 5332236-X (Version None)
Quarter: 2007Q2

REPORT INFORMATION
  Report Type: 
  Country: None (occurrence: None)
  Receive Date: 20070523
  Receipt Date: 20070507
  Transmission Date: 20071010
  Serious: Yes (Other)
  Sender: FDA-Public Use
  Company Number: GB-PURDUE-DEU_2007_0003314

PATIENT
  Age: 60 Year
  Sex: Male

DRUGS (2)
  1. MORPHINE SULFATE [Suspect]
     Indication: PAIN
     Dosage: 20 MG, SEE TEXT
     Route: 042
  2. ANAESTHETICS [Concomitant]

REACTIONS (4)
  - ACIDOSIS [None]
  - GRAND MAL CONVULSION [None]
  - RESPIRATORY RATE DECREASED [None]
  - SUBCUTANEOUS EMPHYSEMA [None]
